FAERS Safety Report 11133269 (Version 3)
Quarter: 2015Q2

REPORT INFORMATION
  Report Type: Spontaneous
  Country: BR (occurrence: BR)
  Receive Date: 20150522
  Receipt Date: 20150622
  Transmission Date: 20150821
  Serious: Yes (Hospitalization, Other)
  Sender: FDA-Public Use
  Company Number: PHHY2015BR062220

PATIENT
  Age: 68 Year
  Sex: Female
  Weight: 96 kg

DRUGS (2)
  1. FORASEQ [Suspect]
     Active Substance: BUDESONIDE\FORMOTEROL FUMARATE
     Indication: EMPHYSEMA
     Dosage: 1 DF, Q12H (TWICE DAILY)
     Route: 055
  2. BAMIFIX [Concomitant]
     Active Substance: BAMIFYLLINE HYDROCHLORIDE
     Indication: DYSPNOEA
     Dosage: UNK
     Route: 065

REACTIONS (4)
  - Wrong technique in drug usage process [Unknown]
  - Influenza [Recovering/Resolving]
  - Lung infection [Recovered/Resolved]
  - Urinary tract infection [Recovering/Resolving]

NARRATIVE: CASE EVENT DATE: 20150328
